FAERS Safety Report 24396793 (Version 1)
Quarter: 2024Q4

REPORT INFORMATION
  Report Type: Spontaneous
  Country: CN (occurrence: CN)
  Receive Date: 20241004
  Receipt Date: 20241004
  Transmission Date: 20250115
  Serious: Yes (Hospitalization)
  Sender: B BRAUN
  Company Number: CN-B.Braun Medical Inc.-2162471

PATIENT
  Age: 25 Year
  Sex: Female
  Weight: 50 kg

DRUGS (1)
  1. NUTRILIPID I.V. FAT EMULSION [Suspect]
     Active Substance: SOYBEAN OIL
     Indication: Habitual abortion
     Dates: start: 20240917

REACTIONS (4)
  - Chest discomfort [Recovered/Resolved]
  - Off label use [Recovered/Resolved]
  - Visual impairment [Recovered/Resolved]
  - Night sweats [Recovered/Resolved]
